FAERS Safety Report 18874351 (Version 2)
Quarter: 2021Q1

REPORT INFORMATION
  Report Type: Spontaneous
  Country: DE (occurrence: DE)
  Receive Date: 20210210
  Receipt Date: 20210309
  Transmission Date: 20210420
  Serious: Yes (Hospitalization, Other)
  Sender: FDA-Public Use
  Company Number: DE-JAZZ-2021-DE-002135

PATIENT
  Age: 10 Week
  Sex: Female

DRUGS (3)
  1. DEFITELIO [Suspect]
     Active Substance: DEFIBROTIDE SODIUM
     Dosage: 50 MILLIGRAM, QID
     Route: 042
     Dates: start: 20180429, end: 20180603
  2. METHYLPREDNISOLONE. [Concomitant]
     Active Substance: METHYLPREDNISOLONE
     Indication: VENOOCCLUSIVE DISEASE
     Dosage: 6 DOSES OF 500 MG/M? EACH
  3. DEFITELIO [Suspect]
     Active Substance: DEFIBROTIDE SODIUM
     Indication: VENOOCCLUSIVE DISEASE
     Dosage: 6.25 MG/KG EVERY 6 H POST DAY 12 OF TRANSPLANT

REACTIONS (2)
  - Cardiac arrest [Recovered/Resolved]
  - Thrombocytopenia [Recovered/Resolved]

NARRATIVE: CASE EVENT DATE: 20180429
